FAERS Safety Report 8369286-5 (Version None)
Quarter: 2012Q2

REPORT INFORMATION
  Report Type: 
  Country: None (occurrence: None)
  Receive Date: 20120518
  Receipt Date: 20120510
  Transmission Date: 20120825
  Serious: Yes (Hospitalization)
  Sender: FDA-Public Use
  Company Number: PHHO2012US007316

PATIENT
  Sex: Male
  Weight: 50 kg

DRUGS (10)
  1. SOMA [Concomitant]
     Route: 048
  2. METOPROLOL [Concomitant]
     Dosage: 100 MG, QD
     Route: 048
  3. SIMVASTATIN [Concomitant]
     Dosage: 80 MG, QD
     Route: 048
  4. MORPHINE [Concomitant]
     Dosage: 60 MG, QD
     Route: 048
  5. VALSARTAN [Suspect]
     Indication: HYPERTENSION
     Dosage: 320 MG, QD
     Route: 048
     Dates: start: 20120303, end: 20120409
  6. AMLODIPINE BESYLATE AND BENAZEPRIL HCL [Concomitant]
     Route: 048
  7. TRILIPIX [Concomitant]
     Dosage: 135 MG, QD
     Route: 048
  8. XANAX [Concomitant]
     Dosage: 0.5 MG, PRN
     Route: 048
  9. PRISTIQ [Concomitant]
     Dosage: 50 MG, QD
     Route: 048
  10. LYRICA [Concomitant]
     Dosage: 300 MG, QD (2 IN ONE DAY)
     Route: 048

REACTIONS (6)
  - RHABDOMYOLYSIS [None]
  - HYPONATRAEMIA [None]
  - HYDRONEPHROSIS [None]
  - DEHYDRATION [None]
  - HYPOTENSION [None]
  - RENAL FAILURE ACUTE [None]
